FAERS Safety Report 7497631-1 (Version None)
Quarter: 2011Q2

REPORT INFORMATION
  Report Type: 
  Country: None (occurrence: None)
  Receive Date: 20110523
  Receipt Date: 20110517
  Transmission Date: 20111010
  Serious: Yes (Other)
  Sender: FDA-Public Use
  Company Number: FR-PFIZER INC-2011105454

PATIENT
  Age: 56 Year
  Sex: Male

DRUGS (2)
  1. DEPAKENE [Concomitant]
     Indication: INJURY
     Dosage: 500 MG, 3X/DAY
     Route: 048
     Dates: start: 19910101
  2. VFEND [Suspect]
     Indication: BRONCHOPULMONARY ASPERGILLOSIS
     Dosage: 200 MG, 2X/DAY
     Route: 048
     Dates: start: 20110310

REACTIONS (2)
  - DECREASED APPETITE [None]
  - APATHY [None]
